FAERS Safety Report 5053006-6 (Version None)
Quarter: 2006Q3

REPORT INFORMATION
  Report Type: 
  Country: None (occurrence: None)
  Receive Date: 20060712
  Receipt Date: 20060627
  Transmission Date: 20061208
  Serious: Yes (Hospitalization)
  Sender: FDA-Public Use
  Company Number: 2006BI002679

PATIENT
  Age: 56 Year
  Sex: Male
  Weight: 97.5234 kg

DRUGS (6)
  1. AVONEX [Suspect]
     Indication: MULTIPLE SCLEROSIS
     Dosage: 30 UG;QW;IM
     Route: 030
     Dates: start: 20040714
  2. IMITREX [Concomitant]
  3. MOTRIN [Concomitant]
  4. MYSOLINE [Concomitant]
  5. TOPAMAX [Concomitant]
  6. DEPAKOTE [Concomitant]

REACTIONS (4)
  - CONFUSIONAL STATE [None]
  - FEBRILE CONVULSION [None]
  - PNEUMONIA [None]
  - UPPER RESPIRATORY TRACT INFECTION [None]
